FAERS Safety Report 5170941-9 (Version None)
Quarter: 2006Q4

REPORT INFORMATION
  Report Type: 
  Country: None (occurrence: None)
  Receive Date: 20061213
  Receipt Date: 20061206
  Transmission Date: 20070319
  Serious: Yes (Other)
  Sender: FDA-Public Use
  Company Number: 2006UW27258

PATIENT
  Age: 59 Year
  Sex: Female
  Weight: 58 kg

DRUGS (4)
  1. ARIMIDEX [Suspect]
     Indication: BONE NEOPLASM MALIGNANT
     Route: 048
     Dates: start: 20061204
  2. CLORIDRATO DE METILFORMINA [Concomitant]
     Indication: DIABETES MELLITUS
     Route: 048
     Dates: start: 20061205
  3. GENFIBROZILA [Concomitant]
     Indication: HYPERTRIGLYCERIDAEMIA
     Route: 048
     Dates: start: 20061204
  4. LOSAR HCT [Concomitant]
     Indication: HYPERTENSION
     Dosage: 50 / 12.5 MG
     Route: 048
     Dates: end: 20061204

REACTIONS (3)
  - ABDOMINAL PAIN [None]
  - ANAL HAEMORRHAGE [None]
  - DIARRHOEA [None]
